FAERS Safety Report 8099025-7 (Version None)
Quarter: 2012Q1

REPORT INFORMATION
  Report Type: 
  Country: None (occurrence: None)
  Receive Date: 20120131
  Receipt Date: 20120123
  Transmission Date: 20120608
  Serious: Yes (Hospitalization, Other)
  Sender: FDA-Public Use
  Company Number: US-PFIZER INC-2010137302

PATIENT
  Sex: Female

DRUGS (14)
  1. PROTONIX [Suspect]
     Indication: PANCREATITIS
     Dosage: 40 MG, 1X/DAY
  2. ATENOLOL [Concomitant]
  3. ACETYLSALICYLIC ACID [Concomitant]
  4. ADVAIR DISKUS 100/50 [Concomitant]
     Indication: ASTHMA
  5. DILANTIN-125 [Suspect]
     Indication: GRAND MAL CONVULSION
     Dosage: UNK
     Dates: start: 19890101
  6. PROTONIX [Suspect]
     Indication: GASTROOESOPHAGEAL REFLUX DISEASE
  7. PANTOPRAZOLE [Suspect]
     Indication: PANCREATITIS
     Dosage: 40 MG, 1X/DAY
  8. ALBUTEROL [Concomitant]
     Indication: ASTHMA
     Dosage: AS NEEDED
     Route: 055
  9. GLUCOSAMINE [Concomitant]
     Indication: ARTHRITIS
  10. PANTOPRAZOLE [Suspect]
     Indication: GASTROOESOPHAGEAL REFLUX DISEASE
  11. PANTOPRAZOLE [Suspect]
  12. PANTOPRAZOLE [Suspect]
     Dosage: 40 MG, UNK
  13. FISH OIL [Concomitant]
  14. NEURONTIN [Suspect]
     Indication: CONVULSION
     Dosage: UNK

REACTIONS (7)
  - DRUG INEFFECTIVE [None]
  - OXYGEN SATURATION DECREASED [None]
  - CEREBRAL CYST [None]
  - BLOOD PRESSURE INCREASED [None]
  - GASTROOESOPHAGEAL REFLUX DISEASE [None]
  - PANCREATITIS [None]
  - CONVULSION [None]
